FAERS Safety Report 10745782 (Version 3)
Quarter: 2015Q2

REPORT INFORMATION
  Report Type: Spontaneous
  Country: US (occurrence: US)
  Receive Date: 20150128
  Receipt Date: 20150514
  Transmission Date: 20150821
  Serious: Yes (Hospitalization, Disabling, Other)
  Sender: FDA-Public Use
  Company Number: US-009507513-1105USA03177

PATIENT
  Sex: Female
  Weight: 77.98 kg

DRUGS (7)
  1. FOSAMAX [Suspect]
     Active Substance: ALENDRONATE SODIUM
     Indication: OSTEOPOROSIS
     Dosage: 10 MG, QD
     Route: 048
     Dates: start: 1997
  2. VITAMINS (UNSPECIFIED) [Concomitant]
     Active Substance: VITAMINS
     Indication: ROUTINE HEALTH MAINTENANCE
     Dosage: UNK, QD
  3. FOSAMAX [Suspect]
     Active Substance: ALENDRONATE SODIUM
     Indication: OSTEOPENIA
     Dosage: 70 MG, QW
     Route: 048
     Dates: start: 20030404, end: 201004
  4. CALCIUM (UNSPECIFIED) [Concomitant]
     Active Substance: CALCIUM
     Indication: OSTEOPOROSIS
     Dosage: UNK, QD
     Dates: start: 1989
  5. ALENDRONATE SODIUM. [Suspect]
     Active Substance: ALENDRONATE SODIUM
     Indication: OSTEOPENIA
  6. VITAMIN D [Concomitant]
     Active Substance: CHOLECALCIFEROL
     Indication: OSTEOPOROSIS
     Dosage: 1000 MG, QD
     Dates: start: 1989
  7. ALENDRONATE SODIUM. [Suspect]
     Active Substance: ALENDRONATE SODIUM
     Indication: OSTEOPOROSIS
     Dosage: 70 MG, QW
     Route: 048
     Dates: start: 20080304, end: 2010

REACTIONS (27)
  - Haemorrhagic anaemia [Recovering/Resolving]
  - Hypertension [Unknown]
  - Spinal laminectomy [Unknown]
  - Bladder neck suspension [Unknown]
  - Blister [Unknown]
  - Nausea [Recovered/Resolved]
  - Peripheral artery aneurysm [Unknown]
  - Therapeutic embolisation [Unknown]
  - Procedural pain [Recovered/Resolved]
  - Hypercholesterolaemia [Unknown]
  - Palpitations [Unknown]
  - Gastrooesophageal reflux disease [Unknown]
  - Osteoporosis [Not Recovered/Not Resolved]
  - Spinal fracture [Unknown]
  - Musculoskeletal pain [Unknown]
  - Arterial haemorrhage [Unknown]
  - Femur fracture [Unknown]
  - Spinal osteoarthritis [Unknown]
  - Intervertebral disc degeneration [Unknown]
  - Intramedullary rod insertion [Unknown]
  - Spinal column stenosis [Unknown]
  - Osteoarthritis [Unknown]
  - Low turnover osteopathy [Not Recovered/Not Resolved]
  - Spinal laminectomy [Unknown]
  - Medical device removal [Unknown]
  - Upper extremity mass [Unknown]
  - Asthenia [Unknown]

NARRATIVE: CASE EVENT DATE: 1999
